FAERS Safety Report 22879285 (Version 2)
Quarter: 2024Q3

REPORT INFORMATION
  Report Type: Report from Study
  Country: MX (occurrence: MX)
  Receive Date: 20230829
  Receipt Date: 20240913
  Transmission Date: 20241017
  Serious: Yes (Death)
  Sender: NOVARTIS
  Company Number: MX-002147023-NVSC2023MX186822

PATIENT
  Sex: Female
  Weight: 35 kg

DRUGS (1)
  1. IMATINIB [Suspect]
     Active Substance: IMATINIB
     Indication: Chronic myeloid leukaemia
     Dosage: 2 DOSAGE FORM, TID
     Route: 048

REACTIONS (3)
  - Leukaemia [Fatal]
  - Depression [Fatal]
  - Eating disorder [Fatal]
